FAERS Safety Report 9016390 (Version 1)
Quarter: 2013Q1

REPORT INFORMATION
  Report Type: Spontaneous
  Country: US (occurrence: US)
  Receive Date: 20130116
  Receipt Date: 20130116
  Transmission Date: 20140127
  Serious: Yes (Hospitalization)
  Sender: FDA-Public Use
  Company Number: US-GLAXOSMITHKLINE-A0724623A

PATIENT
  Sex: Male
  Weight: 113.6 kg

DRUGS (3)
  1. AVANDIA [Suspect]
     Indication: TYPE 2 DIABETES MELLITUS
     Dosage: 8MG PER DAY
     Route: 048
     Dates: start: 200104, end: 200705
  2. METFORMIN [Concomitant]
  3. GLUCOTROL [Concomitant]

REACTIONS (1)
  - Myocardial infarction [Not Recovered/Not Resolved]
